FAERS Safety Report 5195778-6 (Version None)
Quarter: 2007Q1

REPORT INFORMATION
  Report Type: 
  Country: None (occurrence: None)
  Receive Date: 20070102
  Receipt Date: 20061220
  Transmission Date: 20070707
  Serious: Yes (Other)
  Sender: FDA-Public Use
  Company Number: FRWYE483609NOV06

PATIENT
  Sex: Female

DRUGS (7)
  1. ENBREL [Suspect]
     Indication: ANKYLOSING SPONDYLITIS
     Route: 058
     Dates: start: 20060807, end: 20061023
  2. ETHINYL ESTRADIOL AND LEVONORGESTREL [Suspect]
     Dates: end: 20060101
  3. RIFINAH [Interacting]
     Indication: TUBERCULOSIS SKIN TEST POSITIVE
     Dosage: UNKNOWN
  4. BUTAZOLIDIN [Suspect]
     Dosage: 300 MG TOTAL DAILY
     Dates: end: 20060101
  5. LEXOMIL [Suspect]
     Route: 048
  6. LEVOTHYROXINE SODIUM [Suspect]
     Indication: THYROIDITIS
     Route: 048
     Dates: end: 20060101
  7. OMEPRAZOLE [Suspect]
     Route: 048
     Dates: end: 20060101

REACTIONS (4)
  - DRUG INEFFECTIVE [None]
  - DRUG INTERACTION INHIBITION [None]
  - PREGNANCY ON ORAL CONTRACEPTIVE [None]
  - UNINTENDED PREGNANCY [None]
